FAERS Safety Report 8812237 (Version 1)
Quarter: 2012Q4

REPORT INFORMATION
  Report Type: 
  Country: BE (occurrence: BE)
  Receive Date: 20120927
  Receipt Date: 20120927
  Transmission Date: 20130627
  Serious: Yes (Other)
  Sender: FDA-Public Use
  Company Number: BE-BAXTER-2012BAX017717

PATIENT

DRUGS (1)
  1. SODIUM CHLORIDE [Suspect]
     Indication: ANEURYSM INTRACEREBRAL CLIPPING
     Dates: start: 20120914

REACTIONS (2)
  - Laboratory test interference [Unknown]
  - Device occlusion [Unknown]
